FAERS Safety Report 5967505-3 (Version None)
Quarter: 2008Q4

REPORT INFORMATION
  Report Type: 
  Country: None (occurrence: None)
  Receive Date: 20081125
  Receipt Date: 20081117
  Transmission Date: 20090506
  Serious: Yes (Other)
  Sender: FDA-Public Use
  Company Number: US-PFIZER INC-2008088062

PATIENT
  Sex: Female
  Weight: 61.2 kg

DRUGS (1)
  1. CHANTIX [Suspect]
     Indication: SMOKING CESSATION THERAPY
     Dates: start: 20080301

REACTIONS (6)
  - ADVERSE EVENT [None]
  - ANXIETY [None]
  - DEPRESSION [None]
  - DISSOCIATION [None]
  - FEELING OF DESPAIR [None]
  - MENTAL DISORDER [None]
